FAERS Safety Report 13353065 (Version 1)
Quarter: 2017Q1

REPORT INFORMATION
  Report Type: Spontaneous
  Country: US (occurrence: US)
  Receive Date: 20170320
  Receipt Date: 20170320
  Transmission Date: 20170429
  Serious: Yes (Hospitalization, Other)
  Sender: FDA-Public Use
  Company Number: None

PATIENT
  Age: 23 Year
  Sex: Female
  Weight: 72.64 kg

DRUGS (2)
  1. METRONIDAZOLE VAGINAL GEL USP, 0.75% (TOLMAR INC) [Suspect]
     Active Substance: METRONIDAZOLE
     Indication: BACTERIAL VAGINOSIS
     Dosage: 5 APPLICATORS 1 OR 2 A DAY AT BEDTIME, 5 DAYS VAGINAL
     Route: 067
     Dates: start: 20160711, end: 20160713
  2. PRE-NATALS [Concomitant]

REACTIONS (2)
  - Maternal exposure during pregnancy [None]
  - Abortion spontaneous [None]

NARRATIVE: CASE EVENT DATE: 2016
